FAERS Safety Report 16521646 (Version 1)
Quarter: 2019Q3

REPORT INFORMATION
  Report Type: Spontaneous
  Country: IR (occurrence: IR)
  Receive Date: 20190703
  Receipt Date: 20190703
  Transmission Date: 20191004
  Serious: Yes (Other)
  Sender: FDA-Public Use
  Company Number: IR-CIPLA LTD.-2019IR04753

PATIENT

DRUGS (2)
  1. ALBENDAZOLE. [Suspect]
     Active Substance: ALBENDAZOLE
     Indication: STRONGYLOIDIASIS
     Dosage: 400 MILLIGRAM, BID
     Route: 065
  2. DEXAMETHASONE. [Concomitant]
     Active Substance: DEXAMETHASONE
     Indication: ARTHRALGIA
     Dosage: UNK
     Route: 065

REACTIONS (1)
  - Condition aggravated [Unknown]
